FAERS Safety Report 9489937 (Version 1)
Quarter: 2013Q3

REPORT INFORMATION
  Report Type: Report from Study
  Country: US (occurrence: US)
  Receive Date: 20130829
  Receipt Date: 20130829
  Transmission Date: 20140515
  Serious: Yes (Other)
  Sender: FDA-Public Use
  Company Number: US-ABBOTT-13P-163-1137006-00

PATIENT
  Sex: Female

DRUGS (6)
  1. HUMIRA [Suspect]
     Indication: CROHN^S DISEASE
  2. LAMICTAL [Concomitant]
     Indication: BIPOLAR DISORDER
  3. LUNESTA [Concomitant]
     Indication: SLEEP DISORDER
     Dosage: AT BEDTIME
  4. IMURAN [Concomitant]
     Indication: CROHN^S DISEASE
  5. LYRICA [Concomitant]
     Indication: FIBROMYALGIA
  6. LYRICA [Concomitant]

REACTIONS (2)
  - Back pain [Unknown]
  - Injection site pain [Unknown]
